FAERS Safety Report 5531693-3 (Version None)
Quarter: 2007Q4

REPORT INFORMATION
  Report Type: 
  Country: None (occurrence: None)
  Receive Date: 20071128
  Receipt Date: 20071120
  Transmission Date: 20080405
  Serious: Yes (Life-Threatening, Hospitalization)
  Sender: FDA-Public Use
  Company Number: 2007SP019246

PATIENT
  Age: 9 Year
  Sex: Female

DRUGS (6)
  1. NOXAFIL [Suspect]
     Indication: FUNGAL INFECTION
     Dosage: 50 MG;TID
     Dates: start: 20070601, end: 20070702
  2. ONCOVIN [Suspect]
     Indication: CHEMOTHERAPY
     Dosage: 1800 MCG;QD;IV
     Route: 042
     Dates: start: 20070615, end: 20070616
  3. KIDROLASE (ASPARAGINASE) [Suspect]
     Indication: CHEMOTHERAPY
     Dosage: 25000 IU;ONCE;IM
     Route: 030
     Dates: start: 20070616, end: 20070616
  4. CYTARABINE [Suspect]
     Indication: DRUG USE FOR UNKNOWN INDICATION
     Dosage: INTH
     Route: 037
     Dates: start: 20070610, end: 20070610
  5. METHOTREXATE [Suspect]
     Indication: ACUTE LYMPHOCYTIC LEUKAEMIA
     Dosage: 1200 MCG;ONCE;IV
     Route: 042
     Dates: start: 20070615, end: 20070615
  6. NUBAIN [Concomitant]

REACTIONS (8)
  - ALTERED STATE OF CONSCIOUSNESS [None]
  - CONVULSION [None]
  - ELECTROENCEPHALOGRAM ABNORMAL [None]
  - GLASGOW COMA SCALE ABNORMAL [None]
  - HEMIPARESIS [None]
  - HYPONATRAEMIA [None]
  - METABOLIC DISORDER [None]
  - SOMNOLENCE [None]
